FAERS Safety Report 8009355-2 (Version None)
Quarter: 2011Q4

REPORT INFORMATION
  Report Type: 
  Country: None (occurrence: None)
  Receive Date: 20111221
  Receipt Date: 20111214
  Transmission Date: 20120403
  Serious: Yes (Other)
  Sender: FDA-Public Use
  Company Number: 1138485

PATIENT
  Age: 73 Year
  Sex: Male
  Weight: 53 kg

DRUGS (5)
  1. OXALIPLATIN [Suspect]
     Indication: COLON CANCER
     Dosage: 195 MG MILLIGRAMS(S), INTRAVENOUS DRIP
     Route: 041
     Dates: start: 20111208, end: 20111208
  2. IRINOTECAN HYDROCHLORIDE [Concomitant]
  3. FLUOROURACIL [Concomitant]
  4. CAPECITABINE [Concomitant]
  5. DEXAMETHASONE [Concomitant]

REACTIONS (2)
  - CHEST DISCOMFORT [None]
  - LARYNGOSPASM [None]
